FAERS Safety Report 21462487 (Version 1)
Quarter: 2022Q4

REPORT INFORMATION
  Report Type: Spontaneous
  Country: NO (occurrence: NO)
  Receive Date: 20221016
  Receipt Date: 20221016
  Transmission Date: 20230112
  Serious: Yes (Hospitalization)
  Sender: FDA-Public Use
  Company Number: None

PATIENT
  Age: 77 Year
  Sex: Female

DRUGS (1)
  1. AIMOVIG [Suspect]
     Active Substance: ERENUMAB-AOOE
     Indication: Migraine
     Dosage: 70 MILLIGRAM, Q4WK
     Route: 065

REACTIONS (4)
  - Peripheral swelling [Recovering/Resolving]
  - Depressed level of consciousness [Recovering/Resolving]
  - Hemiparesis [Recovering/Resolving]
  - Pain in extremity [Recovering/Resolving]
